FAERS Safety Report 11859344 (Version 8)
Quarter: 2023Q2

REPORT INFORMATION
  Report Type: Report from Study
  Country: US (occurrence: US)
  Receive Date: 20151221
  Receipt Date: 20230524
  Transmission Date: 20230722
  Serious: Yes (Other)
  Sender: FDA-Public Use
  Company Number: US-JAZZ-2015-US-021824

PATIENT
  Sex: Male

DRUGS (21)
  1. XYREM [Suspect]
     Active Substance: SODIUM OXYBATE
     Indication: Narcolepsy
     Dosage: 3 GRAM, BID
     Route: 048
     Dates: start: 200910, end: 2010
  2. XYREM [Suspect]
     Active Substance: SODIUM OXYBATE
     Indication: Cataplexy
     Dosage: 4.5 GRAM, BID
     Route: 048
     Dates: start: 2010, end: 2010
  3. XYREM [Suspect]
     Active Substance: SODIUM OXYBATE
     Indication: Somnolence
     Dosage: 2.25 GRAM, BID
     Route: 048
     Dates: start: 201201, end: 2012
  4. XYREM [Suspect]
     Active Substance: SODIUM OXYBATE
     Dosage: DOSE ADJUSTMENTS
     Route: 048
  5. XYREM [Suspect]
     Active Substance: SODIUM OXYBATE
     Dosage: 4.5 GRAM, BID
     Route: 048
     Dates: start: 2012, end: 2015
  6. XYREM [Suspect]
     Active Substance: SODIUM OXYBATE
     Dosage: 4.5 GRAM, BID
     Route: 048
     Dates: start: 20151213
  7. GABAPENTIN [Concomitant]
     Active Substance: GABAPENTIN
     Indication: Nervous system disorder
     Dosage: UNK
  8. MODAFINIL [Concomitant]
     Active Substance: MODAFINIL
     Indication: Narcolepsy
  9. PANTOPRAZOLE SODIUM [Concomitant]
     Active Substance: PANTOPRAZOLE SODIUM
     Indication: Dyspepsia
  10. FLUTICASONE [Concomitant]
     Active Substance: FLUTICASONE
     Indication: Product used for unknown indication
  11. METHYLPHENIDATE [Concomitant]
     Active Substance: METHYLPHENIDATE
     Indication: Product used for unknown indication
  12. GRALISE [Concomitant]
     Active Substance: GABAPENTIN
     Indication: Product used for unknown indication
  13. SPRYCEL [Concomitant]
     Active Substance: DASATINIB
     Indication: Product used for unknown indication
     Dosage: UNK
     Dates: start: 20180205
  14. DICLOFENAC SODIUM [Concomitant]
     Active Substance: DICLOFENAC SODIUM
     Indication: Product used for unknown indication
  15. HYDROCODONE [Concomitant]
     Active Substance: HYDROCODONE
     Indication: Product used for unknown indication
  16. HYOSCYAMINE [Concomitant]
     Active Substance: HYOSCYAMINE
     Indication: Product used for unknown indication
  17. LEVOCETIRIZINE [Concomitant]
     Active Substance: LEVOCETIRIZINE
     Indication: Product used for unknown indication
  18. FLONASE ALLERGY RELIEF [Concomitant]
     Active Substance: FLUTICASONE PROPIONATE
     Indication: Product used for unknown indication
     Dosage: 0000
     Dates: start: 20151214
  19. NORCO [Concomitant]
     Active Substance: ACETAMINOPHEN\HYDROCODONE BITARTRATE
     Indication: Product used for unknown indication
     Dosage: 0000 FREQUENCY: OTH
     Dates: start: 20151214
  20. ZANAFLEX [Concomitant]
     Active Substance: TIZANIDINE HYDROCHLORIDE
     Indication: Product used for unknown indication
     Dosage: 0000
     Dates: start: 20151214
  21. SULFASALAZINE [Concomitant]
     Active Substance: SULFASALAZINE
     Indication: Product used for unknown indication
     Dosage: 0000
     Dates: start: 20230515

REACTIONS (6)
  - Intervertebral disc protrusion [Recovering/Resolving]
  - Spinal fracture [Recovering/Resolving]
  - Obstructive sleep apnoea syndrome [Recovering/Resolving]
  - Weight decreased [Recovering/Resolving]
  - Hypertension [Not Recovered/Not Resolved]
  - Pregnancy of partner [Unknown]

NARRATIVE: CASE EVENT DATE: 20140101
